FAERS Safety Report 23652859 (Version 1)
Quarter: 2024Q1

REPORT INFORMATION
  Report Type: Spontaneous
  Country: TH (occurrence: TH)
  Receive Date: 20240320
  Receipt Date: 20240320
  Transmission Date: 20240410
  Serious: Yes (Other)
  Sender: FDA-Public Use
  Company Number: TH-009507513-2403THA005608

PATIENT
  Age: 48 Year
  Sex: Male

DRUGS (4)
  1. KEYTRUDA [Suspect]
     Active Substance: PEMBROLIZUMAB
     Indication: Non-small cell lung cancer
  2. CARBOPLATIN [Concomitant]
     Active Substance: CARBOPLATIN
     Dosage: CONTINUE CARBOPLATIN/PACLITAXEL + PEMBROLIZUMAB FOR TOTAL 6 CYCLES
  3. PACLITAXEL [Concomitant]
     Active Substance: PACLITAXEL
     Dosage: CONTINUE CARBOPLATIN/PACLITAXEL + PEMBROLIZUMAB FOR TOTAL 6 CYCLES
  4. ZOLEDRONIC ACID [Concomitant]
     Active Substance: ZOLEDRONIC ACID

REACTIONS (5)
  - Therapy partial responder [Unknown]
  - Blindness [Unknown]
  - Neuropathy peripheral [Unknown]
  - Drug resistance [Unknown]
  - Anaemia [Unknown]
